FAERS Safety Report 18383962 (Version 8)
Quarter: 2021Q1

REPORT INFORMATION
  Report Type: Spontaneous
  Country: PT (occurrence: PT)
  Receive Date: 20201014
  Receipt Date: 20210322
  Transmission Date: 20210419
  Serious: Yes (Hospitalization, Other)
  Sender: FDA-Public Use
  Company Number: PT-AUROBINDO-AUR-APL-2020-051841

PATIENT
  Age: 69 Year
  Sex: Male

DRUGS (7)
  1. SIMVASTATIN. [Suspect]
     Active Substance: SIMVASTATIN
     Indication: DYSLIPIDAEMIA
     Dosage: UNK, SUSPENDED 3 MONTHS BEFORES HOSPITAL ADMISSION
     Route: 048
  2. INSULINA HUMALOG MIX [Concomitant]
     Dosage: 36 INTERNATIONAL UNIT, ONCE A DAY (1 DOSAGE FOM IS COMPOSED 5MG+ 10 MG)
     Route: 042
  3. SALAZOPYRIN [Concomitant]
     Active Substance: SULFASALAZINE
     Dosage: 1000 MILLIGRAM, ONCE A DAY (1 DOSAGE FOM IS COMPOSED 5MG+ 10 MG)
     Route: 048
  4. AMLODIPINE;PERINDOPRIL [Concomitant]
     Active Substance: AMLODIPINE\PERINDOPRIL
     Indication: HYPERTENSION
     Dosage: 1 DOSAGE FORM, ONCE A DAY
     Route: 048
  5. INSULINA HUMALOG MIX [Concomitant]
     Indication: TYPE 2 DIABETES MELLITUS
     Dosage: 12 INTERNATIONAL UNIT, 3 TIMES A DAY(1 DOSAGE FOM IS COMPOSED 5MG+ 10 MG)
     Route: 042
  6. AMLODIPINE;PERINDOPRIL [Concomitant]
     Active Substance: AMLODIPINE\PERINDOPRIL
     Dosage: 1 DOSAGE FORM, ONCE A DAY (IS COMPOSED 5MG+ 10 MG)
     Route: 048
  7. SALAZOPYRIN [Concomitant]
     Active Substance: SULFASALAZINE
     Indication: PRODUCT USED FOR UNKNOWN INDICATION
     Dosage: 500 MILLIGRAM, TWO TIMES A DAY
     Route: 048

REACTIONS (1)
  - Colitis microscopic [Recovered/Resolved]
